FAERS Safety Report 7639720-4 (Version None)
Quarter: 2011Q3

REPORT INFORMATION
  Report Type: 
  Country: None (occurrence: None)
  Receive Date: 20110727
  Receipt Date: 20110722
  Transmission Date: 20111222
  Serious: Yes (Other)
  Sender: FDA-Public Use
  Company Number: AU-PFIZER INC-2011100440

PATIENT
  Age: 57 Year
  Sex: Male
  Weight: 90 kg

DRUGS (5)
  1. ACETAMINOPHEN W/ CODEINE [Concomitant]
     Indication: PAIN
     Dosage: TWO TO THREE DOSES AS NEEDED
     Route: 048
     Dates: start: 19810101, end: 20110101
  2. CELEBREX [Suspect]
     Indication: ARTHRITIS
     Dosage: 200 MG, 1X/DAY
     Route: 048
     Dates: start: 20000620, end: 20030625
  3. PERINDOPRIL ERBUMINE [Concomitant]
     Indication: HYPERTENSION
     Dosage: 4 MG, 1X/DAY
     Route: 048
     Dates: start: 20030625
  4. CAPADEX [Concomitant]
     Indication: PAIN
     Dosage: ONE TO TWO DOSES AS NEEDED
     Route: 048
     Dates: start: 19810101, end: 20110101
  5. TRAMADOL HCL [Concomitant]
     Indication: PAIN
     Dosage: 200 MG, 2X/DAY
     Route: 048
     Dates: start: 20040101, end: 20110101

REACTIONS (4)
  - EMBOLIC STROKE [None]
  - ATRIAL FIBRILLATION [None]
  - PALPITATIONS [None]
  - HYPERTENSION [None]
